FAERS Safety Report 10145899 (Version 1)
Quarter: 2014Q2

REPORT INFORMATION
  Report Type: Report from Study
  Country: MX (occurrence: MX)
  Receive Date: 20140501
  Receipt Date: 20140501
  Transmission Date: 20141212
  Serious: Yes (Death, Hospitalization, Other)
  Sender: FDA-Public Use
  Company Number: PHHY2014MX051937

PATIENT
  Age: 86 Year
  Sex: Female

DRUGS (1)
  1. CO-DIOVAN [Suspect]
     Indication: HYPERTENSION
     Dosage: 1 DF, DAILY (VALS 80 MG, HCTZ 12.5 MG)
     Route: 048

REACTIONS (4)
  - Death [Fatal]
  - Cardiac disorder [Fatal]
  - Musculoskeletal discomfort [Unknown]
  - Fall [Unknown]
